FAERS Safety Report 5402524-7 (Version None)
Quarter: 2007Q3

REPORT INFORMATION
  Report Type: 
  Country: None (occurrence: None)
  Receive Date: 20070801
  Receipt Date: 20061030
  Transmission Date: 20080115
  Serious: No
  Sender: FDA-Public Use
  Company Number: A0622105A

PATIENT
  Age: 52 Year
  Sex: Female

DRUGS (4)
  1. IMITREX [Suspect]
     Indication: MIGRAINE
     Dosage: 50MG AS REQUIRED
     Route: 048
  2. VERAPAMIL [Concomitant]
  3. TOPAMAX [Concomitant]
  4. DOXEPIN HCL [Concomitant]

REACTIONS (2)
  - HYPOAESTHESIA [None]
  - PHARMACEUTICAL PRODUCT COMPLAINT [None]
